FAERS Safety Report 17458284 (Version 1)
Quarter: 2020Q1

REPORT INFORMATION
  Report Type: Report from Study
  Country: NL (occurrence: NL)
  Receive Date: 20200225
  Receipt Date: 20200225
  Transmission Date: 20200409
  Serious: Yes (Other)
  Sender: FDA-Public Use
  Company Number: NL-MYLANLABS-2018M1031385

PATIENT
  Sex: Female
  Weight: 63 kg

DRUGS (3)
  1. MAGNESIUMHYDROXIDE [Concomitant]
     Indication: MULTIPLE SCLEROSIS
     Dosage: UNK, 1 TABLET,  TID
     Route: 048
  2. GLATIRAMEERACETAAT MYLAN 40 MG/ML [Suspect]
     Active Substance: GLATIRAMER ACETATE
     Dosage: 40 MILLIGRAM, 3XW
     Route: 058
     Dates: end: 20200210
  3. GLATIRAMEERACETAAT MYLAN 40 MG/ML [Suspect]
     Active Substance: GLATIRAMER ACETATE
     Indication: MULTIPLE SCLEROSIS
     Dosage: 40 MILLIGRAM
     Route: 058
     Dates: start: 20180507, end: 2020

REACTIONS (7)
  - Asthenia [Recovered/Resolved]
  - Injection site induration [Recovering/Resolving]
  - Progressive multiple sclerosis [Unknown]
  - Sensory loss [Recovered/Resolved]
  - Injection site erythema [Recovered/Resolved]
  - Paraesthesia [Unknown]
  - Product substitution issue [Unknown]

NARRATIVE: CASE EVENT DATE: 20180507
